FAERS Safety Report 13042561 (Version 1)
Quarter: 2016Q4

REPORT INFORMATION
  Report Type: Spontaneous
  Country: FR (occurrence: FR)
  Receive Date: 20161219
  Receipt Date: 20161219
  Transmission Date: 20170207
  Serious: Yes (Other)
  Sender: FDA-Public Use
  Company Number: FR-PFIZER INC-2016578863

PATIENT
  Age: 69 Year
  Sex: Male

DRUGS (9)
  1. GENTAMICINE PANPHARMA [Suspect]
     Active Substance: GENTAMICIN
     Dosage: 400 MG, SINGLE
     Route: 042
     Dates: start: 20160229, end: 20160229
  2. NEFOPAM MEDISOL (NEFOPAM) [Suspect]
     Active Substance: NEFOPAM
     Dosage: UNK
     Dates: start: 20160229, end: 20160229
  3. CLINDAMYCIN. [Suspect]
     Active Substance: CLINDAMYCIN
     Dosage: ONE AMPOULE
     Route: 042
     Dates: start: 20160229, end: 20160229
  4. PROPOFOL PANPHARMA [Suspect]
     Active Substance: PROPOFOL
     Dosage: UNK
     Dates: start: 20160229, end: 20160229
  5. SUFENTANIL MYLAN [Suspect]
     Active Substance: SUFENTANIL
     Dosage: UNK
     Dates: start: 20160229, end: 20160229
  6. ATRACURIUM BESILATE [Suspect]
     Active Substance: ATRACURIUM BESYLATE
     Indication: ANAESTHESIA
     Dosage: 90 MG, SINGLE
     Route: 042
     Dates: start: 20160229, end: 20160229
  7. DEXAMETHASONE MYLAN [Suspect]
     Active Substance: DEXAMETHASONE
     Dosage: ONE AMPOULE
     Route: 042
     Dates: start: 20160229, end: 20160229
  8. KETAMINE RENAUDIN [Suspect]
     Active Substance: KETAMINE
     Dosage: ONE AMPOULE
     Dates: start: 20160229, end: 20160229
  9. ROPIVACAINE KABI [Suspect]
     Active Substance: ROPIVACAINE
     Dosage: UNK
     Dates: start: 20160229, end: 20160229

REACTIONS (1)
  - Acute generalised exanthematous pustulosis [Recovered/Resolved]

NARRATIVE: CASE EVENT DATE: 20160301
